FAERS Safety Report 9407181 (Version 2)
Quarter: 2013Q4

REPORT INFORMATION
  Report Type: Spontaneous
  Country: IE (occurrence: IE)
  Receive Date: 20130718
  Receipt Date: 20131203
  Transmission Date: 20140711
  Serious: Yes (Hospitalization, Other)
  Sender: FDA-Public Use
  Company Number: IE-ROCHE-1250348

PATIENT
  Age: 49 Year
  Sex: Female
  Weight: 52.2 kg

DRUGS (6)
  1. ROACTEMRA [Suspect]
     Indication: PRODUCT USED FOR UNKNOWN INDICATION
     Route: 042
     Dates: start: 20120221
  2. ROACTEMRA [Suspect]
     Dosage: DOSE HALVED
     Route: 065
     Dates: start: 20121113
  3. ROACTEMRA [Suspect]
     Route: 065
     Dates: start: 20121211
  4. ROACTEMRA [Suspect]
     Route: 065
     Dates: start: 20130103
  5. ROACTEMRA [Suspect]
     Route: 065
     Dates: start: 20130131
  6. DMARD DRUG (UNK INGREDIENTS) [Concomitant]
     Route: 048

REACTIONS (3)
  - Gastrointestinal haemorrhage [Recovering/Resolving]
  - Neutropenia [Recovered/Resolved]
  - Gastric perforation [Unknown]
